FAERS Safety Report 6367910-X (Version None)
Quarter: 2009Q3

REPORT INFORMATION
  Report Type: 
  Country: None (occurrence: None)
  Receive Date: 20090922
  Receipt Date: 20090910
  Transmission Date: 20100115
  Serious: Yes (Hospitalization)
  Sender: FDA-Public Use
  Company Number: FR-ELI_LILLY_AND_COMPANY-FR200909002562

PATIENT
  Sex: Male
  Weight: 95 kg

DRUGS (8)
  1. PEMETREXED [Suspect]
     Indication: NON-SMALL CELL LUNG CANCER
     Dosage: 500 MG/M2 ON DAY1 EVERY 21 DAYS
     Route: 042
     Dates: start: 20090522, end: 20090724
  2. PEMETREXED [Suspect]
     Dosage: UNK, ON DAY 1 EVERY 21 DAYS
     Route: 042
     Dates: start: 20090820
  3. CISPLATIN [Suspect]
     Indication: NON-SMALL CELL LUNG CANCER
     Dosage: 75 MG/M2 ON DAY 1 EVERY 21 DAYS
     Route: 042
     Dates: start: 20090522, end: 20090724
  4. BEST SUPPORTIVE CARE [Suspect]
     Indication: NON-SMALL CELL LUNG CANCER
     Dates: start: 20090820
  5. FOLIC ACID [Concomitant]
     Indication: PROPHYLAXIS
     Dates: start: 20090515
  6. VITAMIN B-12 [Concomitant]
     Indication: PROPHYLAXIS
     Dates: start: 20090515
  7. CORTANCYL [Concomitant]
     Indication: PROPHYLAXIS
     Dates: start: 20090521, end: 20090821
  8. SPIRIVA [Concomitant]
     Indication: CHRONIC OBSTRUCTIVE PULMONARY DISEASE
     Dates: start: 20080101

REACTIONS (1)
  - LUNG DISORDER [None]
